FAERS Safety Report 14237306 (Version 1)
Quarter: 2017Q4

REPORT INFORMATION
  Report Type: Report from Study
  Country: CA (occurrence: CA)
  Receive Date: 20171129
  Receipt Date: 20171129
  Transmission Date: 20180321
  Serious: Yes (Hospitalization)
  Sender: FDA-Public Use
  Company Number: PHHY2017CA173500

PATIENT
  Sex: Female

DRUGS (3)
  1. APO-METOPROLOL [Concomitant]
     Active Substance: METOPROLOL
     Indication: PRODUCT USED FOR UNKNOWN INDICATION
     Dosage: 50 MG, BID
     Route: 048
     Dates: start: 2002
  2. SANDOSTATIN LAR DEPOT [Suspect]
     Active Substance: OCTREOTIDE ACETATE
     Indication: CARCINOID TUMOUR
     Dosage: 30 MG, Q4W
     Route: 030
     Dates: start: 20171030
  3. OCTREOTIDE. [Suspect]
     Active Substance: OCTREOTIDE
     Indication: CARCINOID TUMOUR
     Dosage: UNK (TEAT DOSE)
     Route: 058
     Dates: start: 20171010, end: 20171010

REACTIONS (3)
  - Haemoglobin decreased [Recovering/Resolving]
  - Fluid retention [Recovering/Resolving]
  - Blood pressure increased [Recovering/Resolving]
